FAERS Safety Report 25784335 (Version 2)
Quarter: 2025Q3

REPORT INFORMATION
  Report Type: Spontaneous
  Country: JP (occurrence: JP)
  Receive Date: 20250910
  Receipt Date: 20250925
  Transmission Date: 20251020
  Serious: Yes (Other)
  Sender: AMGEN
  Company Number: JP-DSJP-DS-2025-163329-

PATIENT

DRUGS (2)
  1. DENOSUMAB [Suspect]
     Active Substance: DENOSUMAB
     Indication: Product used for unknown indication
     Dosage: 60 MILLIGRAM, Q6MO
     Route: 058
  2. DENOSUMAB [Suspect]
     Active Substance: DENOSUMAB
     Dosage: 60 MG, ONCE EVERY 6 MO
     Route: 058
     Dates: start: 202505

REACTIONS (2)
  - Fracture [Unknown]
  - Physical deconditioning [Unknown]

NARRATIVE: CASE EVENT DATE: 20250901
